FAERS Safety Report 9626210 (Version 1)
Quarter: 2013Q4

REPORT INFORMATION
  Report Type: Spontaneous
  Country: US (occurrence: None)
  Receive Date: 20131015
  Receipt Date: 20131015
  Transmission Date: 20140711
  Serious: Yes (Disabling)
  Sender: FDA-Public Use
  Company Number: None

PATIENT
  Age: 33 Year
  Sex: Female
  Weight: 63 kg

DRUGS (1)
  1. CIPROFLOXACIN 500MG [Suspect]
     Indication: URINARY TRACT INFECTION
     Dosage: ONE PILL TWICE DAILY
     Route: 048
     Dates: start: 20131011, end: 20131013

REACTIONS (7)
  - Tendonitis [None]
  - Fatigue [None]
  - Palpitations [None]
  - Vision blurred [None]
  - Myalgia [None]
  - Mental impairment [None]
  - Arthropathy [None]
